FAERS Safety Report 7824115-0 (Version None)
Quarter: 2011Q4

REPORT INFORMATION
  Report Type: 
  Country: None (occurrence: None)
  Receive Date: 20111018
  Receipt Date: 20111018
  Transmission Date: 20120403
  Serious: Yes (Hospitalization)
  Sender: FDA-Public Use
  Company Number: None

PATIENT
  Age: 61 Year
  Sex: Male
  Weight: 79.5 kg

DRUGS (1)
  1. FUROSEMIDE [Suspect]
     Indication: HEPATIC CIRRHOSIS
     Dosage: 60 MG TID PO
     Route: 048
     Dates: start: 20110903, end: 20110923

REACTIONS (1)
  - HYPOKALAEMIA [None]
